FAERS Safety Report 12820659 (Version 2)
Quarter: 2016Q4

REPORT INFORMATION
  Report Type: Spontaneous
  Country: FR (occurrence: FR)
  Receive Date: 20161006
  Receipt Date: 20161011
  Transmission Date: 20170207
  Serious: Yes (Hospitalization)
  Sender: FDA-Public Use
  Company Number: FR-SA-2016SA181326

PATIENT
  Age: 81 Year
  Sex: Male

DRUGS (8)
  1. PLAVIX [Suspect]
     Active Substance: CLOPIDOGREL BISULFATE
     Route: 048
     Dates: start: 20160624, end: 20160804
  2. KARDEGIC [Concomitant]
     Active Substance: ASPIRIN LYSINE
     Dosage: STRENGTH: 160 MG POWDER FOR ORAL SOLUTION IN SACHET
     Route: 048
     Dates: start: 20160624
  3. BACTRIM [Concomitant]
     Active Substance: SULFAMETHOXAZOLE\TRIMETHOPRIM
     Route: 042
     Dates: start: 20160710, end: 20160712
  4. ORBENINE [Suspect]
     Active Substance: CLOXACILLIN SODIUM
     Route: 048
     Dates: start: 20160703, end: 20160705
  5. MERONEM [Suspect]
     Active Substance: MEROPENEM
     Indication: ANTIBIOTIC THERAPY
     Route: 048
     Dates: start: 20160725, end: 20160801
  6. TAVANIC [Suspect]
     Active Substance: LEVOFLOXACIN
     Indication: ANTIBIOTIC THERAPY
     Dosage: STRENGTH-250 MG FILM COATED DIVISIBLE TABLET
     Route: 042
     Dates: start: 20160725, end: 20160801
  7. SPIRIVA [Concomitant]
     Active Substance: TIOTROPIUM BROMIDE MONOHYDRATE
     Dosage: FORM: INHALATION POWDER IN CAPSULE
     Route: 055
  8. TAHOR [Concomitant]
     Active Substance: ATORVASTATIN CALCIUM
     Dosage: STRENGTH: 20 MG
     Route: 048
     Dates: start: 20160624

REACTIONS (3)
  - Eosinophilia [Recovered/Resolved]
  - Hyperthermia [Recovered/Resolved]
  - Rash erythematous [Recovered/Resolved]

NARRATIVE: CASE EVENT DATE: 20160703
